FAERS Safety Report 10412406 (Version 1)
Quarter: 2014Q2

REPORT INFORMATION
  Report Type: Spontaneous
  Country: US (occurrence: None)
  Receive Date: 20140604
  Receipt Date: 20140604
  Transmission Date: 20141212
  Serious: Yes (Hospitalization)
  Sender: FDA-Public Use
  Company Number: 20100223CINRY1379

PATIENT
  Age: 54 Year
  Sex: Female

DRUGS (3)
  1. CINRYSE [Suspect]
     Indication: HEREDITARY ANGIOEDEMA
     Dosage: 2 IN 1 WEEK
     Route: 042
  2. CINRYSE [Suspect]
     Indication: PROPHYLAXIS
     Dosage: 2 IN 1 WEEK
     Route: 042
  3. STEROIDS (STEROID ANTIBACTERIALS) [Concomitant]

REACTIONS (5)
  - Hereditary angioedema [None]
  - Drug ineffective [None]
  - Malaise [None]
  - Depressed mood [None]
  - Malaise [None]
